FAERS Safety Report 13231057 (Version 2)
Quarter: 2017Q3

REPORT INFORMATION
  Report Type: Spontaneous
  Country: JP (occurrence: JP)
  Receive Date: 20170214
  Receipt Date: 20170830
  Transmission Date: 20171127
  Serious: Yes (Death, Other)
  Sender: FDA-Public Use
  Company Number: JP-GLAXOSMITHKLINE-JP2017JPN020079

PATIENT
  Age: 11 Year
  Sex: Female
  Weight: 20 kg

DRUGS (15)
  1. VALPROATE SODIUM. [Concomitant]
     Active Substance: VALPROATE SODIUM
     Indication: EPILEPSY
     Dosage: UNK UNK, TID
  2. LAMICTAL [Suspect]
     Active Substance: LAMOTRIGINE
     Dosage: 5 MG, BID
     Route: 050
     Dates: start: 20160623, end: 20160704
  3. RIVOTRIL [Concomitant]
     Active Substance: CLONAZEPAM
     Indication: EPILEPSY
     Dosage: 0.3 MG, BID
  4. MOSAPRIDE CITRATE HYDRATE [Concomitant]
     Active Substance: MOSAPRIDE CITRATE DIHYDRATE
     Dosage: UNK, TID
  5. LANSOPRAZOLE-OD [Concomitant]
     Active Substance: LANSOPRAZOLE
     Dosage: 15 MG, QD
  6. LAMICTAL [Suspect]
     Active Substance: LAMOTRIGINE
     Dosage: 5 MG, QD
     Route: 050
     Dates: start: 20160609, end: 20160622
  7. THYRADIN S [Concomitant]
     Active Substance: LEVOTHYROXINE SODIUM
     Dosage: 40 ?G, QD
  8. CARBOCISTEINE DS [Concomitant]
     Dosage: UNK, TID
  9. LAMICTAL [Suspect]
     Active Substance: LAMOTRIGINE
     Indication: PARTIAL SEIZURES
     Dosage: 2 MG, QD
     Route: 050
     Dates: start: 20160526, end: 20160608
  10. TERNELIN [Concomitant]
     Active Substance: TIZANIDINE
     Dosage: 1 MG, TID
  11. DANTRIUM [Concomitant]
     Active Substance: DANTROLENE SODIUM
     Dosage: UNK, TID
  12. ERYTHROCIN DRY SYRUP W20% [Concomitant]
     Dosage: 20 MG, BID
  13. SODIUM CHLORIDE. [Concomitant]
     Active Substance: SODIUM CHLORIDE
     Dosage: UNK, TID
  14. TRICLORYL [Concomitant]
     Active Substance: TRICLOFOS SODIUM
     Dosage: 15 ML, PRN
  15. ALFAROL [Concomitant]
     Active Substance: ALFACALCIDOL
     Dosage: 0.2 ?G, QD

REACTIONS (2)
  - Sudden unexplained death in epilepsy [Fatal]
  - Cardio-respiratory arrest [Fatal]

NARRATIVE: CASE EVENT DATE: 20160704
